FAERS Safety Report 8920163 (Version 1)
Quarter: 2012Q4

REPORT INFORMATION
  Report Type: 
  Country: US (occurrence: US)
  Receive Date: 20121121
  Receipt Date: 20121121
  Transmission Date: 20130627
  Serious: Yes (Life-Threatening, Hospitalization, Other)
  Sender: FDA-Public Use
  Company Number: US-TEVA-371150USA

PATIENT
  Age: 75 Year
  Sex: Female

DRUGS (12)
  1. BACTRIM [Suspect]
  2. SAXAGLIPTIN [Suspect]
     Indication: TYPE 2 DIABETES MELLITUS
     Dates: start: 20111110, end: 20120917
  3. METFORMIN HCL [Suspect]
     Indication: TYPE 2 DIABETES MELLITUS
  4. PLACEBO [Suspect]
     Indication: TYPE 2 DIABETES MELLITUS
     Dates: start: 20111110, end: 20120917
  5. ASPIRIN [Concomitant]
  6. MILRINONE [Concomitant]
     Dates: start: 20120822, end: 20120826
  7. ADP ANTAGONIST [Concomitant]
  8. BETA-BLOCKER [Concomitant]
  9. STATIN [Concomitant]
  10. ANGIOTENSIN CONVERTING ENZYME INHIBITOR [Concomitant]
  11. CALCIUM ANTAGONIST [Concomitant]
  12. DIURETICS [Concomitant]

REACTIONS (5)
  - Thrombocytopenia [Recovered/Resolved]
  - Presyncope [Recovered/Resolved]
  - Cardiac failure acute [Recovered/Resolved]
  - Septic shock [Recovered/Resolved]
  - Atrial fibrillation [Recovered/Resolved]
